FAERS Safety Report 22129656 (Version 4)
Quarter: 2024Q1

REPORT INFORMATION
  Report Type: Report from Study
  Country: DE (occurrence: DE)
  Receive Date: 20230323
  Receipt Date: 20240117
  Transmission Date: 20240409
  Serious: No
  Sender: FDA-Public Use
  Company Number: DE-PFM-2023-01142

PATIENT

DRUGS (3)
  1. NERATINIB [Suspect]
     Active Substance: NERATINIB
     Indication: Breast cancer
     Dosage: 240 MG/ DAY
     Route: 048
     Dates: start: 20230129
  2. NERATINIB [Suspect]
     Active Substance: NERATINIB
     Dosage: 200 MG, UNK
     Route: 048
  3. LOPERAMIDE [Concomitant]
     Active Substance: LOPERAMIDE
     Indication: Prophylaxis against diarrhoea
     Dosage: 2 MG, PRN (AS NEEDED)
     Route: 065
     Dates: start: 20230129, end: 20230219

REACTIONS (3)
  - Thrombocytopenia [Unknown]
  - Diarrhoea [Recovered/Resolved]
  - Epistaxis [Unknown]

NARRATIVE: CASE EVENT DATE: 20230203
